FAERS Safety Report 13285060 (Version 8)
Quarter: 2018Q1

REPORT INFORMATION
  Report Type: Report from Study
  Country: AT (occurrence: AT)
  Receive Date: 20170301
  Receipt Date: 20180302
  Transmission Date: 20180508
  Serious: Yes (Death, Life-Threatening, Hospitalization, Other)
  Sender: FDA-Public Use
  Company Number: AT-INCYTE CORPORATION-2016IN001396

PATIENT

DRUGS (17)
  1. LISINOPRIL. [Concomitant]
     Active Substance: LISINOPRIL
     Indication: HYPERTENSION
     Dosage: 10 MG, QD
     Route: 065
     Dates: start: 1980
  2. HYDROXYUREA. [Concomitant]
     Active Substance: HYDROXYUREA
     Dosage: 100 OT, QD
  3. HYDROXYUREA. [Concomitant]
     Active Substance: HYDROXYUREA
     Dosage: 100 OT, QD
  4. ELIQUIS [Concomitant]
     Active Substance: APIXABAN
     Dosage: 60 OT, BID
     Route: 065
  5. HYDROXYUREA. [Concomitant]
     Active Substance: HYDROXYUREA
     Dosage: 100 OT, QD
  6. JAKAVI [Suspect]
     Active Substance: RUXOLITINIB
     Indication: MYELOFIBROSIS
     Dosage: 20 MG, QD
     Route: 048
     Dates: start: 20140728
  7. JAKAVI [Suspect]
     Active Substance: RUXOLITINIB
     Dosage: 20 MG, QD
     Route: 065
     Dates: start: 20151113
  8. JAKAVI [Suspect]
     Active Substance: RUXOLITINIB
     Dosage: 2 DF, QD (20 MG)
     Route: 048
     Dates: end: 20151123
  9. LISINOPRIL. [Concomitant]
     Active Substance: LISINOPRIL
     Dosage: 0.5 UNK, QD (1/2, 1-0-0)
     Route: 065
  10. TEBOFORTAN [Concomitant]
     Active Substance: GINKGO
     Indication: PERIPHERAL VASCULAR DISORDER
     Dosage: 40 MG, QD
     Route: 065
  11. JAKAVI [Suspect]
     Active Substance: RUXOLITINIB
     Dosage: 20 MG, BID
     Route: 065
  12. ELIQUIS [Concomitant]
     Active Substance: APIXABAN
     Indication: PRODUCT USED FOR UNKNOWN INDICATION
     Dosage: 50 OT, QD
     Route: 065
  13. HYDROXYUREA. [Concomitant]
     Active Substance: HYDROXYUREA
     Dosage: 100 OT, QD
  14. BELOC [Concomitant]
     Active Substance: METOPROLOL TARTRATE
     Indication: HYPERTENSION
     Dosage: 50 MG, QD
     Route: 065
     Dates: start: 1980
  15. EPOETIN ZETA [Concomitant]
     Active Substance: ERYTHROPOIETIN
     Indication: PRODUCT USED FOR UNKNOWN INDICATION
     Route: 058
  16. HYDROXYUREA. [Concomitant]
     Active Substance: HYDROXYUREA
     Indication: PRODUCT USED FOR UNKNOWN INDICATION
     Dosage: 100 ST, QD
     Route: 065
  17. VIDAZA [Concomitant]
     Active Substance: AZACITIDINE
     Indication: PRODUCT USED FOR UNKNOWN INDICATION
     Dosage: UNK
     Route: 065
     Dates: start: 20151123

REACTIONS (18)
  - Confusional state [Fatal]
  - Anaemia [Fatal]
  - Gastrointestinal disorder [Not Recovered/Not Resolved]
  - Asthenia [Fatal]
  - Gastrointestinal haemorrhage [Fatal]
  - Nausea [Fatal]
  - Respiratory tract infection [Fatal]
  - Disorientation [Fatal]
  - Pyrexia [Fatal]
  - General physical health deterioration [Fatal]
  - Abdominal pain upper [Fatal]
  - Somnolence [Fatal]
  - Diarrhoea [Fatal]
  - Cough [Fatal]
  - Cerebral ischaemia [Fatal]
  - Myelofibrosis [Fatal]
  - Otitis media viral [Fatal]
  - Vomiting [Fatal]

NARRATIVE: CASE EVENT DATE: 20141215
